FAERS Safety Report 9950498 (Version 1)
Quarter: 2014Q1

REPORT INFORMATION
  Report Type: Report from Study
  Country: US (occurrence: US)
  Receive Date: 20140304
  Receipt Date: 20140304
  Transmission Date: 20141002
  Serious: No
  Sender: FDA-Public Use
  Company Number: US-ABBVIE-13P-163-1071810-00

PATIENT
  Age: 58 Year
  Sex: Female

DRUGS (6)
  1. HUMIRA [Suspect]
     Indication: RHEUMATOID ARTHRITIS
     Dates: start: 20130330
  2. TRAMADOL [Concomitant]
     Indication: PAIN
     Dosage: AS NEEDED, 1-2 TABS, USUALLY TOOK 1 TAB PER DAY
  3. TRIAMT/HCTZ [Concomitant]
     Indication: HYPERTENSION
     Dosage: 37.5/25
  4. VITAMIN B [Concomitant]
     Indication: PRODUCT USED FOR UNKNOWN INDICATION
  5. BAYER ASPIRIN [Concomitant]
     Indication: PROPHYLAXIS
  6. VALCYCLOVIR [Concomitant]
     Indication: HERPES SIMPLEX

REACTIONS (3)
  - Device malfunction [Unknown]
  - Incorrect dose administered [Unknown]
  - Injection site pain [Recovering/Resolving]
